FAERS Safety Report 6288300-4 (Version None)
Quarter: 2009Q3

REPORT INFORMATION
  Report Type: 
  Country: None (occurrence: None)
  Receive Date: 20090729
  Receipt Date: 20090721
  Transmission Date: 20100115
  Serious: Yes (Hospitalization)
  Sender: FDA-Public Use
  Company Number: FR-ASTRAZENECA-2009SE05494

PATIENT
  Age: 53 Year
  Sex: Female

DRUGS (8)
  1. ATENOLOL [Suspect]
     Indication: PALPITATIONS
     Route: 048
     Dates: start: 20070101, end: 20070701
  2. ATENOLOL [Suspect]
     Route: 048
     Dates: start: 20070901
  3. OMEPRAZOLE [Concomitant]
     Route: 065
  4. ASPEGIC 1000 [Concomitant]
     Route: 065
  5. FISONIPRIL [Concomitant]
     Route: 065
  6. PRAVASATINE [Concomitant]
     Route: 065
  7. RIVOTRIL [Concomitant]
     Route: 065
  8. UNSPECIFIED INSULINE [Concomitant]

REACTIONS (1)
  - HYPERKALAEMIA [None]
